FAERS Safety Report 5829164-X (Version None)
Quarter: 2008Q3

REPORT INFORMATION
  Report Type: 
  Country: None (occurrence: None)
  Receive Date: 20080731
  Receipt Date: 20080721
  Transmission Date: 20090109
  Serious: Yes (Hospitalization, Other)
  Sender: FDA-Public Use
  Company Number: US-ABBOTT-08P-163-0464502-OO

PATIENT
  Sex: Female
  Weight: 54.48 kg

DRUGS (5)
  1. HUMIRA [Suspect]
     Indication: CROHN'S DISEASE
     Route: 058
     Dates: start: 20080601, end: 20080601
  2. HUMIRA [Suspect]
     Route: 058
     Dates: start: 20080701, end: 20080701
  3. HUMIRA [Suspect]
     Route: 058
     Dates: start: 20080701
  4. ARMORTHYROID [Concomitant]
     Indication: DRUG USE FOR UNKNOWN INDICATION
  5. TYLOX [Concomitant]
     Indication: PAIN

REACTIONS (3)
  - BLOOD POTASSIUM DECREASED [None]
  - PAIN [None]
  - STAPHYLOCOCCAL INFECTION [None]
